FAERS Safety Report 9611602 (Version 1)
Quarter: 2013Q4

REPORT INFORMATION
  Report Type: Spontaneous
  Country: US (occurrence: US)
  Receive Date: 20131010
  Receipt Date: 20131010
  Transmission Date: 20140711
  Serious: No
  Sender: FDA-Public Use
  Company Number: US-009507513-1309USA010946

PATIENT
  Sex: 0

DRUGS (3)
  1. EMEND FOR INJECTION [Suspect]
     Route: 042
  2. DOXORUBICIN [Concomitant]
     Indication: CHEMOTHERAPY
     Route: 042
  3. CYTOXAN [Concomitant]
     Indication: CHEMOTHERAPY
     Route: 042

REACTIONS (2)
  - Infusion site pain [Unknown]
  - Catheterisation venous [Unknown]
